FAERS Safety Report 6876580-3 (Version None)
Quarter: 2010Q3

REPORT INFORMATION
  Report Type: 
  Country: None (occurrence: None)
  Receive Date: 20100727
  Receipt Date: 20091127
  Transmission Date: 20110219
  Serious: No
  Sender: FDA-Public Use
  Company Number: US-PFIZER INC-2008027286

PATIENT
  Sex: Female
  Weight: 64.4 kg

DRUGS (9)
  1. CHANTIX [Suspect]
     Indication: SMOKING CESSATION THERAPY
     Dosage: UNK
     Dates: start: 20071001, end: 20090101
  2. ADDERALL 10 [Interacting]
     Indication: ATTENTION DEFICIT/HYPERACTIVITY DISORDER
     Dosage: FREQUENCY: 2X/DAY,
  3. ULTRAM [Concomitant]
  4. BENADRYL [Concomitant]
  5. ACETAMINOPHEN [Concomitant]
  6. PRILOSEC [Concomitant]
  7. SUCRALFATE [Concomitant]
  8. LASIX [Concomitant]
  9. VALIUM [Concomitant]

REACTIONS (11)
  - ABDOMINAL PAIN UPPER [None]
  - ABNORMAL DREAMS [None]
  - DRUG INEFFECTIVE [None]
  - DRUG INTERACTION [None]
  - DYSGEUSIA [None]
  - HYPERPHAGIA [None]
  - INSOMNIA [None]
  - NAUSEA [None]
  - PAROSMIA [None]
  - SLEEP TALKING [None]
  - WEIGHT INCREASED [None]
